FAERS Safety Report 5131946-7 (Version None)
Quarter: 2006Q4

REPORT INFORMATION
  Report Type: 
  Country: None (occurrence: None)
  Receive Date: 20061017
  Receipt Date: 20060707
  Transmission Date: 20070319
  Serious: Yes (Other)
  Sender: FDA-Public Use
  Company Number: 2005104209

PATIENT
  Age: 55 Year
  Sex: Female
  Weight: 92.9874 kg

DRUGS (4)
  1. BEXTRA [Suspect]
     Indication: FIBROMYALGIA
     Dosage: 20 MG (30 MG, 1 IN 1 D)
  2. BEXTRA [Suspect]
     Indication: OSTEOARTHRITIS
     Dosage: 20 MG (30 MG, 1 IN 1 D)
  3. FLEXERIL [Concomitant]
  4. PAXIL [Concomitant]

REACTIONS (4)
  - HAEMORRHAGE [None]
  - PURPURA [None]
  - RASH [None]
  - RASH PRURITIC [None]
